FAERS Safety Report 19242979 (Version 1)
Quarter: 2021Q2

REPORT INFORMATION
  Report Type: Report from Study
  Country: MX (occurrence: MX)
  Receive Date: 20210511
  Receipt Date: 20210511
  Transmission Date: 20210717
  Serious: Yes (Life-Threatening, Other)
  Sender: FDA-Public Use
  Company Number: NVSC2021MX102890

PATIENT
  Sex: Female
  Weight: 54 kg

DRUGS (1)
  1. ENTRESTO [Suspect]
     Active Substance: SACUBITRIL\VALSARTAN
     Indication: CARDIAC DISORDER
     Dosage: 100 MG, UNKNOWN
     Route: 065

REACTIONS (8)
  - Product use in unapproved indication [Unknown]
  - Feeling abnormal [Unknown]
  - Product dose omission issue [Unknown]
  - COVID-19 [Recovered/Resolved]
  - Hypoacusis [Unknown]
  - Hip fracture [Unknown]
  - Rectal ulcer [Unknown]
  - Speech disorder [Unknown]
